FAERS Safety Report 4716261-5 (Version None)
Quarter: 2005Q2

REPORT INFORMATION
  Report Type: 
  Country: None (occurrence: None)
  Receive Date: 20050630
  Receipt Date: 20050503
  Transmission Date: 20051028
  Serious: Yes (Hospitalization, Other)
  Sender: FDA-Public Use
  Company Number: USA050494975

PATIENT
  Sex: Female

DRUGS (8)
  1. HUMALOG MIX 75/25 [Suspect]
  2. LIPITOR [Concomitant]
  3. ATENOLOL [Concomitant]
  4. VICODIN [Concomitant]
  5. METFORMIN [Concomitant]
  6. HYDROCORTISONE [Concomitant]
  7. LISINOPRIL [Concomitant]
  8. INDAPAMIDE [Concomitant]

REACTIONS (1)
  - PITUITARY TUMOUR RECURRENT [None]
